FAERS Safety Report 9462807 (Version 3)
Quarter: 2013Q4

REPORT INFORMATION
  Report Type: Spontaneous
  Country: JP (occurrence: JP)
  Receive Date: 20130816
  Receipt Date: 20131003
  Transmission Date: 20140711
  Serious: Yes (Death, Other)
  Sender: FDA-Public Use
  Company Number: JP-EISAI INC-E2090-02804-SPO-JP

PATIENT
  Age: 75 Year
  Sex: Male

DRUGS (11)
  1. EXCEGRAN [Suspect]
     Indication: CEREBROVASCULAR ACCIDENT
     Route: 048
     Dates: start: 20111014, end: 20120125
  2. PARIET [Suspect]
     Indication: GASTROOESOPHAGEAL REFLUX DISEASE
     Route: 048
     Dates: start: 20111209, end: 201203
  3. DEPAKENE-R [Suspect]
     Indication: PRODUCT USED FOR UNKNOWN INDICATION
     Route: 048
     Dates: end: 20120125
  4. NORVASC [Suspect]
     Indication: PRODUCT USED FOR UNKNOWN INDICATION
     Dates: start: 20111209, end: 201203
  5. MUCOSOLVAN [Suspect]
     Indication: PRODUCT USED FOR UNKNOWN INDICATION
     Route: 048
     Dates: start: 20111209, end: 201203
  6. CALONAL [Concomitant]
     Indication: UPPER RESPIRATORY TRACT INFLAMMATION
     Route: 048
     Dates: start: 20111221, end: 20111227
  7. CRAVIT [Concomitant]
     Indication: UPPER RESPIRATORY TRACT INFLAMMATION
     Route: 048
     Dates: start: 20111221, end: 20111227
  8. MYSLEE [Concomitant]
     Route: 048
  9. GRIMAC [Concomitant]
     Route: 048
     Dates: start: 20111209
  10. MIYA BM [Concomitant]
     Route: 048
     Dates: start: 20111209
  11. ISODINE GARGLE [Concomitant]
     Dates: start: 20111221

REACTIONS (2)
  - Drug reaction with eosinophilia and systemic symptoms [Fatal]
  - Pneumonia [Recovered/Resolved]
